FAERS Safety Report 5576005-4 (Version None)
Quarter: 2007Q4

REPORT INFORMATION
  Report Type: 
  Country: None (occurrence: None)
  Receive Date: 20071228
  Receipt Date: 20071218
  Transmission Date: 20080405
  Serious: Yes (Hospitalization)
  Sender: FDA-Public Use
  Company Number: PHBS2007AU21303

PATIENT
  Age: 53 Year
  Sex: Female

DRUGS (8)
  1. CYTARABINE [Concomitant]
     Dosage: 3 G/M2 BID ON DAY 1, 3, 5, 7
     Route: 042
  2. CYTARABINE [Concomitant]
     Dosage: 100 MG/M2
     Route: 042
  3. IDARUBICIN HCL [Concomitant]
     Dosage: 12 MG/M2 D1-3
     Route: 065
  4. IDARUBICIN HCL [Concomitant]
     Dosage: 9 MG/M2
     Route: 065
  5. HEMATOPOETIC PROGENITOR CELLS HUMAN [Concomitant]
     Dosage: AUTOLOGOUS STEM CELL TRANSPLANT
  6. FLUDARABINE PHOSPHATE [Concomitant]
     Dosage: 25 MG/M2 D - 6 TO -2
     Route: 065
  7. CYCLOPHOSPHAMIDE [Concomitant]
     Dosage: 1 G/M2 -2 AND -1
     Route: 065
  8. IMATINIB [Suspect]
     Indication: ACUTE MYELOID LEUKAEMIA
     Dosage: 400 MG/D
     Route: 065

REACTIONS (5)
  - LIVER FUNCTION TEST ABNORMAL [None]
  - NEUTROPENIA [None]
  - NEUTROPENIC COLITIS [None]
  - OEDEMA PERIPHERAL [None]
  - THROMBOCYTOPENIA [None]
